FAERS Safety Report 10201184 (Version 1)
Quarter: 2014Q2

REPORT INFORMATION
  Report Type: Spontaneous
  Country: US (occurrence: US)
  Receive Date: 20140528
  Receipt Date: 20140528
  Transmission Date: 20141212
  Serious: No
  Sender: FDA-Public Use
  Company Number: US-PFIZER INC-2014141198

PATIENT
  Age: 87 Year
  Sex: Female
  Weight: 79.37 kg

DRUGS (9)
  1. TOLTERODINE TARTRATE [Suspect]
     Indication: INCONTINENCE
     Dosage: 4 MG, DAILY
  2. LEVOTHYROXINE [Concomitant]
     Dosage: UNK
  3. LOSARTAN [Concomitant]
     Dosage: UNK
  4. CRESTOR [Concomitant]
     Dosage: UNK
  5. GLIPIZIDE [Concomitant]
     Dosage: UNK
  6. ASPIRIN [Concomitant]
     Dosage: UNK
  7. METFORMIN [Concomitant]
     Dosage: UNK
  8. BYETTA [Concomitant]
     Dosage: UNK
  9. NIFEDICAL [Concomitant]
     Dosage: UNK

REACTIONS (3)
  - Nervousness [Not Recovered/Not Resolved]
  - Dry mouth [Not Recovered/Not Resolved]
  - Constipation [Not Recovered/Not Resolved]
